FAERS Safety Report 16704048 (Version 1)
Quarter: 2019Q3

REPORT INFORMATION
  Report Type: Spontaneous
  Country: US (occurrence: US)
  Receive Date: 20190628
  Receipt Date: 20190628
  Transmission Date: 20191004
  Serious: No
  Sender: FDA-Public Use
  Company Number: None

PATIENT
  Age: 51 Year
  Sex: Female

DRUGS (1)
  1. PREDNISONE TAB 20MG [Suspect]
     Active Substance: PREDNISONE
     Dates: start: 20190620

REACTIONS (3)
  - Thyroid disorder [None]
  - Mental status changes [None]
  - Weight increased [None]

NARRATIVE: CASE EVENT DATE: 20190628
